FAERS Safety Report 15775679 (Version 1)
Quarter: 2018Q4

REPORT INFORMATION
  Report Type: Spontaneous
  Country: US (occurrence: US)
  Receive Date: 20181231
  Receipt Date: 20181231
  Transmission Date: 20190205
  Serious: No
  Sender: FDA-Public Use
  Company Number: US-DRREDDYS-USA/USA/18/0096379

PATIENT
  Age: 34 Year
  Sex: Male
  Weight: 59 kg

DRUGS (1)
  1. HABITROL [Suspect]
     Active Substance: NICOTINE
     Indication: SMOKING CESSATION THERAPY
     Route: 062

REACTIONS (4)
  - Application site rash [Recovered/Resolved]
  - Skin disorder [Unknown]
  - Pruritus [Recovering/Resolving]
  - Burning sensation [Unknown]
